FAERS Safety Report 8734480 (Version 3)
Quarter: 2012Q4

REPORT INFORMATION
  Report Type: 
  Country: JP (occurrence: JP)
  Receive Date: 20120821
  Receipt Date: 20121126
  Transmission Date: 20130627
  Serious: Yes (Other)
  Sender: FDA-Public Use
  Company Number: JP-GLAXOSMITHKLINE-B0823775A

PATIENT
  Age: 0 Year
  Sex: Male
  Weight: 2.9 kg

DRUGS (3)
  1. LAMICTAL [Suspect]
     Indication: EPILEPSY
     Dosage: 60MG Twice per day
     Route: 064
     Dates: start: 20090625
  2. FOLIAMIN [Concomitant]
     Dosage: 5MG Per day
     Route: 064
     Dates: start: 20110610
  3. MAGMITT [Concomitant]
     Dosage: 100MG Three times per day
     Route: 064

REACTIONS (3)
  - Congenital hand malformation [Not Recovered/Not Resolved]
  - Congenital nail disorder [Not Recovered/Not Resolved]
  - Foetal exposure during pregnancy [Unknown]
